FAERS Safety Report 7435914-1 (Version None)
Quarter: 2011Q2

REPORT INFORMATION
  Report Type: 
  Country: None (occurrence: None)
  Receive Date: 20110425
  Receipt Date: 20110411
  Transmission Date: 20111010
  Serious: Yes (Death, Life-Threatening)
  Sender: FDA-Public Use
  Company Number: JP-AMGEN-KDC434530

PATIENT
  Age: 62 Year
  Sex: Male
  Weight: 48 kg

DRUGS (10)
  1. PANITUMUMAB [Suspect]
     Indication: PROPHYLAXIS
     Dosage: 6 MG/KG, Q2WK
     Route: 041
     Dates: start: 20100720, end: 20100720
  2. MORPHINE HYDROCHLORIDE [Concomitant]
     Dosage: UNK UNK, UNK
     Route: 048
  3. MORPHINE HYDROCHLORIDE [Concomitant]
     Route: 042
  4. MORPHINE HYDROCHLORIDE [Concomitant]
     Route: 048
  5. HYDROCORTISONE [Concomitant]
     Dosage: UNK UNK, UNK
     Route: 042
  6. MORPHINE HYDROCHLORIDE [Concomitant]
     Dosage: UNK UNK, UNK
     Route: 048
  7. FENTANYL [Concomitant]
     Dosage: UNK UNK, UNK
     Route: 062
  8. MORPHINE HYDROCHLORIDE [Concomitant]
     Route: 042
  9. CORTICOSTEROIDS [Concomitant]
     Indication: PROPHYLAXIS
     Dosage: UNK UNK, UNK
  10. MORPHINE HYDROCHLORIDE [Concomitant]
     Route: 048

REACTIONS (2)
  - COLORECTAL CANCER [None]
  - DYSPNOEA [None]
